FAERS Safety Report 20170333 (Version 4)
Quarter: 2024Q1

REPORT INFORMATION
  Report Type: Spontaneous
  Country: US (occurrence: US)
  Receive Date: 20211210
  Receipt Date: 20240315
  Transmission Date: 20240409
  Serious: No
  Sender: FDA-Public Use
  Company Number: US-PFIZER INC-202101698293

PATIENT
  Age: 54 Year
  Sex: Female

DRUGS (1)
  1. PRISTIQ EXTENDED-RELEASE [Suspect]
     Active Substance: DESVENLAFAXINE SUCCINATE
     Dosage: UNK

REACTIONS (5)
  - Dizziness [Unknown]
  - Balance disorder [Unknown]
  - Withdrawal syndrome [Unknown]
  - Hypoaesthesia oral [Unknown]
  - Intentional product misuse [Unknown]
